FAERS Safety Report 14870031 (Version 2)
Quarter: 2018Q2

REPORT INFORMATION
  Report Type: Spontaneous
  Country: TW (occurrence: TW)
  Receive Date: 20180509
  Receipt Date: 20180521
  Transmission Date: 20180711
  Serious: Yes (Other)
  Sender: FDA-Public Use
  Company Number: TW-BAYER-2017-085623

PATIENT
  Age: 73 Year
  Sex: Female

DRUGS (7)
  1. STIVARGA [Suspect]
     Active Substance: REGORAFENIB
     Indication: INTESTINAL METASTASIS
     Dosage: 160 MG, QD
     Route: 048
     Dates: end: 2016
  2. STIVARGA [Suspect]
     Active Substance: REGORAFENIB
     Indication: METASTASES TO LIVER
     Dosage: 120 MG DAILY DOSE X 2 WEEKS X 4
     Route: 048
     Dates: start: 20160513, end: 2016
  3. STIVARGA [Suspect]
     Active Substance: REGORAFENIB
     Indication: ADENOCARCINOMA OF COLON
     Dosage: 120 MG X 2 WEEKS X 4
     Route: 048
     Dates: start: 20161013
  4. STIVARGA [Suspect]
     Active Substance: REGORAFENIB
     Indication: METASTASES TO GASTROINTESTINAL TRACT
     Dosage: 120 MG, QD
     Route: 048
     Dates: start: 2016, end: 2016
  5. STIVARGA [Suspect]
     Active Substance: REGORAFENIB
     Indication: ADENOCARCINOMA OF COLON
     Dosage: UNK
  6. STIVARGA [Suspect]
     Active Substance: REGORAFENIB
     Indication: ADENOCARCINOMA OF COLON
     Dosage: 120 MG, QD X 1 WEEK X 2
     Route: 048
     Dates: start: 20160225, end: 2016
  7. STIVARGA [Suspect]
     Active Substance: REGORAFENIB
     Indication: METASTASES TO ABDOMINAL WALL
     Dosage: 120 MG X 2 WEEKS X 4
     Route: 048
     Dates: start: 20160722, end: 2016

REACTIONS (3)
  - Adenocarcinoma of colon [None]
  - Alopecia [None]
  - Hypertension [None]

NARRATIVE: CASE EVENT DATE: 2016
